FAERS Safety Report 9297660 (Version 2)
Quarter: 2013Q2

REPORT INFORMATION
  Report Type: Report from Study
  Country: AR (occurrence: AR)
  Receive Date: 20130520
  Receipt Date: 20130605
  Transmission Date: 20140414
  Serious: Yes (Other)
  Sender: FDA-Public Use
  Company Number: PHHY2013AR040831

PATIENT
  Sex: Female

DRUGS (4)
  1. DIOVAN [Suspect]
     Indication: HYPERTENSION
     Dosage: 1 DF, QD
     Route: 048
     Dates: end: 201203
  2. DIOVAN [Suspect]
     Dosage: 1 DF (80MG), UNK
     Route: 048
  3. DIOVAN [Suspect]
     Dosage: 2 DF, DAILY
  4. ATENOLOL [Concomitant]
     Dosage: UNK UKN, UNK

REACTIONS (4)
  - Arterial occlusive disease [Not Recovered/Not Resolved]
  - Hypertension [Recovered/Resolved]
  - Visual acuity reduced [Recovered/Resolved]
  - Blood cholesterol increased [Not Recovered/Not Resolved]
